FAERS Safety Report 5227881-6 (Version None)
Quarter: 2007Q1

REPORT INFORMATION
  Report Type: 
  Country: None (occurrence: None)
  Receive Date: 20070202
  Receipt Date: 20070123
  Transmission Date: 20070707
  Serious: Yes (Other)
  Sender: FDA-Public Use
  Company Number: FR-PFIZER INC-2006154418

PATIENT
  Sex: Female
  Weight: 55 kg

DRUGS (7)
  1. LYRICA [Suspect]
     Route: 048
  2. BREXIN [Concomitant]
  3. THIOCOLCHICOSIDE [Concomitant]
     Route: 048
  4. ACETAMINOPHEN W/ CODEINE [Concomitant]
     Route: 048
  5. CLONAZEPAM [Concomitant]
     Route: 048
  6. PANTOPRAZOLE SODIUM [Concomitant]
     Route: 048
  7. BIOFLAVONOIDS [Concomitant]
     Route: 048

REACTIONS (5)
  - EYE OEDEMA [None]
  - EYELID OEDEMA [None]
  - FACE OEDEMA [None]
  - GENERALISED OEDEMA [None]
  - OEDEMA PERIPHERAL [None]
